FAERS Safety Report 25198374 (Version 3)
Quarter: 2025Q2

REPORT INFORMATION
  Report Type: Spontaneous
  Country: US (occurrence: US)
  Receive Date: 20250415
  Receipt Date: 20250421
  Transmission Date: 20250716
  Serious: Yes (Life-Threatening, Hospitalization, Other)
  Sender: GLENMARK
  Company Number: US-GLENMARK PHARMACEUTICALS-2025GMK099307

PATIENT
  Age: 75 Year
  Sex: Male

DRUGS (1)
  1. METFORMIN HYDROCHLORIDE [Suspect]
     Active Substance: METFORMIN HYDROCHLORIDE
     Indication: Type 2 diabetes mellitus
     Route: 065

REACTIONS (6)
  - Toxicity to various agents [Unknown]
  - Distributive shock [Recovered/Resolved]
  - Leukocytosis [Unknown]
  - Lactic acidosis [Recovering/Resolving]
  - Metabolic acidosis [Unknown]
  - Acute kidney injury [Recovering/Resolving]
